FAERS Safety Report 5323942-1 (Version None)
Quarter: 2007Q2

REPORT INFORMATION
  Report Type: 
  Country: None (occurrence: None)
  Receive Date: 20070514
  Receipt Date: 20070503
  Transmission Date: 20071010
  Serious: Yes (Other)
  Sender: FDA-Public Use
  Company Number: GB-ROCHE-496806

PATIENT
  Age: 44 Year
  Sex: Female
  Weight: 95 kg

DRUGS (1)
  1. XENICAL [Suspect]
     Indication: OBESITY
     Route: 048
     Dates: start: 20070320

REACTIONS (5)
  - ANGER [None]
  - ANXIETY [None]
  - DEPRESSION [None]
  - IRRITABILITY [None]
  - TENSION [None]
